FAERS Safety Report 14837976 (Version 2)
Quarter: 2018Q2

REPORT INFORMATION
  Report Type: Spontaneous
  Country: BR (occurrence: BR)
  Receive Date: 20180502
  Receipt Date: 20180524
  Transmission Date: 20180711
  Serious: Yes (Other)
  Sender: FDA-Public Use
  Company Number: BR-PFIZER INC-2018174271

PATIENT
  Age: 79 Year
  Sex: Female

DRUGS (3)
  1. XALACOM [Suspect]
     Active Substance: LATANOPROST\TIMOLOL MALEATE
     Indication: GLAUCOMA
     Dosage: 1 APPLICATION IN THE RIGHT EYE AT NIGHT
     Route: 047
     Dates: start: 2000
  2. ALPHABRIN [Concomitant]
     Dosage: UNK
  3. DORZOLAMIDE HYDROCHLORIDE/TIMOLOL MALEATE [Concomitant]
     Dosage: UNK

REACTIONS (1)
  - Cataract [Recovered/Resolved]
